FAERS Safety Report 5765914-9 (Version None)
Quarter: 2008Q2

REPORT INFORMATION
  Report Type: 
  Country: None (occurrence: None)
  Receive Date: 20080611
  Receipt Date: 20070620
  Transmission Date: 20081010
  Serious: No
  Sender: FDA-Public Use
  Company Number: US-BRISTOL-MYERS SQUIBB COMPANY-13821020

PATIENT
  Sex: Female
  Weight: 56 kg

DRUGS (2)
  1. SINEMET [Suspect]
     Indication: PARKINSON'S DISEASE
     Dosage: THE DOSAGE WAS INCREASED TO 4 TIMES PER DAY DUE TO RESTLESS LEG SYNDROME.
     Route: 048
     Dates: start: 20050101, end: 20070618
  2. SINEMET [Suspect]
     Indication: RESTLESS LEGS SYNDROME
     Dosage: THE DOSAGE WAS INCREASED TO 4 TIMES PER DAY DUE TO RESTLESS LEG SYNDROME.
     Route: 048
     Dates: start: 20050101, end: 20070618

REACTIONS (1)
  - RESTLESS LEGS SYNDROME [None]
